FAERS Safety Report 21500054 (Version 2)
Quarter: 2023Q2

REPORT INFORMATION
  Report Type: Spontaneous
  Country: CA (occurrence: CA)
  Receive Date: 20221024
  Receipt Date: 20230410
  Transmission Date: 20230721
  Serious: Yes (Other)
  Sender: FDA-Public Use
  Company Number: CA-PFIZER INC-202201249299

PATIENT
  Age: 65 Year
  Sex: Female
  Weight: 108.86 kg

DRUGS (1)
  1. SULFASALAZINE [Suspect]
     Active Substance: SULFASALAZINE
     Dosage: 1 DF
     Dates: start: 2012, end: 2012

REACTIONS (5)
  - Anaphylactic reaction [Unknown]
  - Swollen tongue [Unknown]
  - Stomatitis [Unknown]
  - Skin lesion [Unknown]
  - Drug ineffective [Unknown]
